FAERS Safety Report 5587757-1 (Version None)
Quarter: 2007Q4

REPORT INFORMATION
  Report Type: 
  Country: None (occurrence: None)
  Receive Date: 20071207
  Receipt Date: 20070329
  Transmission Date: 20080405
  Serious: Yes (Other)
  Sender: FDA-Public Use
  Company Number: 35593

PATIENT
  Age: 71 Year
  Sex: Female

DRUGS (1)
  1. AMIODARONE HCL [Suspect]
     Indication: THORACOTOMY
     Dosage: 0.5MG/MIN/IV/CONTINUOUS
     Route: 042
     Dates: start: 20070329

REACTIONS (1)
  - EXTRAVASATION [None]
